FAERS Safety Report 13164928 (Version 13)
Quarter: 2019Q2

REPORT INFORMATION
  Report Type: Spontaneous
  Country: US (occurrence: US)
  Receive Date: 20170130
  Receipt Date: 20190416
  Transmission Date: 20190711
  Serious: Yes (Hospitalization)
  Sender: FDA-Public Use
  Company Number: US-ACTELION-A-NJ2017-149133

PATIENT
  Age: 50 Year
  Sex: Female
  Weight: 86.17 kg

DRUGS (11)
  1. VELETRI [Suspect]
     Active Substance: EPOPROSTENOL
     Dosage: 60 NG/KG, PER MIN
     Route: 042
  2. ADEMPAS [Concomitant]
     Active Substance: RIOCIGUAT
  3. ORENITRAM [Concomitant]
     Active Substance: TREPROSTINIL
  4. VELETRI [Suspect]
     Active Substance: EPOPROSTENOL
     Indication: PULMONARY ARTERIAL HYPERTENSION
     Dosage: 29 NG/KG, PER MIN
     Route: 042
     Dates: start: 20151222
  5. XARELTO [Concomitant]
     Active Substance: RIVAROXABAN
  6. LETAIRIS [Concomitant]
     Active Substance: AMBRISENTAN
  7. VELETRI [Suspect]
     Active Substance: EPOPROSTENOL
     Dosage: 27 NG/KG, PER MIN
     Route: 042
  8. OXYGEN. [Concomitant]
     Active Substance: OXYGEN
     Dosage: 4 L/MIN, UNK
  9. COUMADIN [Concomitant]
     Active Substance: WARFARIN SODIUM
     Dosage: UNK
  10. COUMADIN [Concomitant]
     Active Substance: WARFARIN SODIUM
     Dosage: 7.5 MG, QD
  11. ADCIRCA [Concomitant]
     Active Substance: TADALAFIL

REACTIONS (21)
  - Pneumonia viral [Unknown]
  - Dizziness [Unknown]
  - Sinusitis [Unknown]
  - Vascular device infection [Unknown]
  - Myocardial infarction [Unknown]
  - Upper respiratory tract infection [Unknown]
  - Abdominal discomfort [Unknown]
  - Dyspnoea exertional [Unknown]
  - Hypotension [Unknown]
  - Erythema [Unknown]
  - Fatigue [Unknown]
  - Dyspnoea [Unknown]
  - Vomiting [Unknown]
  - Chest pain [Unknown]
  - Therapy change [Unknown]
  - Pneumonia [Unknown]
  - Palpitations [Unknown]
  - Pruritus [Unknown]
  - Multiple allergies [Unknown]
  - Presyncope [Unknown]
  - Anxiety [Unknown]

NARRATIVE: CASE EVENT DATE: 201709
